FAERS Safety Report 16043641 (Version 1)
Quarter: 2019Q1

REPORT INFORMATION
  Report Type: Spontaneous
  Country: ES (occurrence: ES)
  Receive Date: 20190306
  Receipt Date: 20190306
  Transmission Date: 20190418
  Serious: Yes (Death, Other)
  Sender: FDA-Public Use
  Company Number: ES-PFIZER INC-2019097580

PATIENT
  Age: 78 Year
  Sex: Female

DRUGS (9)
  1. TRASTUZUMAB. [Suspect]
     Active Substance: TRASTUZUMAB
     Indication: GASTRIC CANCER
     Route: 042
     Dates: start: 20190124, end: 20190124
  2. BISOPROLOL [Concomitant]
     Active Substance: BISOPROLOL
  3. RAMIPRIL. [Concomitant]
     Active Substance: RAMIPRIL
  4. ELIQUIS [Concomitant]
     Active Substance: APIXABAN
  5. PANTOPRAZOLE [Concomitant]
     Active Substance: PANTOPRAZOLE
  6. CAPECITABINE. [Suspect]
     Active Substance: CAPECITABINE
     Indication: GASTRIC CANCER
     Dosage: UNK
     Dates: start: 20190124
  7. ATORVASTATIN [Concomitant]
     Active Substance: ATORVASTATIN
  8. OXALIPLATIN. [Suspect]
     Active Substance: OXALIPLATIN
     Indication: GASTRIC CANCER
     Dosage: UNK
     Dates: start: 20190124
  9. SEGURIL [Concomitant]
     Active Substance: FUROSEMIDE

REACTIONS (7)
  - Asthenia [Fatal]
  - Ileus paralytic [Fatal]
  - Multiple organ dysfunction syndrome [Fatal]
  - Nausea [Fatal]
  - Acute kidney injury [Fatal]
  - Hypothermia [Fatal]
  - Diarrhoea [Fatal]

NARRATIVE: CASE EVENT DATE: 20190124
